FAERS Safety Report 8769397 (Version 1)
Quarter: 2012Q4

REPORT INFORMATION
  Report Type: 
  Country: GB (occurrence: GB)
  Receive Date: 20120904
  Receipt Date: 20120904
  Transmission Date: 20130627
  Serious: Yes (Other)
  Sender: FDA-Public Use
  Company Number: GB-BAYER-2012-090619

PATIENT
  Age: 45 Year
  Sex: Female

DRUGS (2)
  1. CANESTEN COMBI 500MG PESSARY + 2% CREAM [Suspect]
     Indication: VULVOVAGINAL CANDIDIASIS
     Dosage: UNK
  2. CANESTEN COMBI 500MG PESSARY + 2% CREAM [Suspect]
     Indication: VULVOVAGINAL CANDIDIASIS
     Dosage: UNK
     Dates: start: 20120829

REACTIONS (1)
  - Vaginal haemorrhage [None]
